FAERS Safety Report 6065225-0 (Version None)
Quarter: 2009Q1

REPORT INFORMATION
  Report Type: 
  Country: None (occurrence: None)
  Receive Date: 20090130
  Receipt Date: 20090119
  Transmission Date: 20090719
  Serious: Yes (Hospitalization, Disabling)
  Sender: FDA-Public Use
  Company Number: GXKR2009DK01051

PATIENT
  Age: 67 Year
  Sex: Female

DRUGS (2)
  1. DICLOXACILLIN [Suspect]
     Indication: POST PROCEDURAL INFECTION
     Dosage: 500 MG, QID, ORAL
     Route: 048
     Dates: start: 20060427
  2. DICLOXACILLIN SODIUM MONOHYDRATE [Suspect]
     Indication: POST PROCEDURAL INFECTION

REACTIONS (5)
  - ATRIAL FIBRILLATION [None]
  - DISCOMFORT [None]
  - NAUSEA [None]
  - RENAL DISORDER [None]
  - VOMITING [None]
